FAERS Safety Report 6592750-6 (Version None)
Quarter: 2010Q1

REPORT INFORMATION
  Report Type: 
  Country: None (occurrence: None)
  Receive Date: 20100212
  Receipt Date: 20091218
  Transmission Date: 20100710
  Serious: No
  Sender: FDA-Public Use
  Company Number: 002727

PATIENT
  Sex: Male

DRUGS (7)
  1. VIMPAT [Suspect]
     Indication: PARTIAL SEIZURES
     Dosage: 25 MG, QD, 50 MG 1/2 TABLET IN THE EVENING, 50 MG BID, 200 MG, 50-50-100 MG
  2. VALPROATE SODIUM [Suspect]
     Indication: GRAND MAL CONVULSION
     Dosage: 1000 MG BID, 1500 MG, 500-0-1000
  3. AGGRENOX [Concomitant]
  4. SIMVASTATIN [Concomitant]
  5. GLIMEPIRIDE [Concomitant]
  6. PANTOPRAZOLE [Concomitant]
  7. NEURAZEPAM [Concomitant]

REACTIONS (5)
  - CONDITION AGGRAVATED [None]
  - FATIGUE [None]
  - GAIT DISTURBANCE [None]
  - HEMIPARESIS [None]
  - PARTIAL SEIZURES [None]
